FAERS Safety Report 26044059 (Version 1)
Quarter: 2025Q4

REPORT INFORMATION
  Report Type: Spontaneous
  Country: CN (occurrence: CN)
  Receive Date: 20251114
  Receipt Date: 20251114
  Transmission Date: 20260118
  Serious: Yes (Other)
  Sender: ALEXION PHARMACEUTICALS
  Company Number: CN-ASTRAZENECA-202511GLO005738CN

PATIENT
  Age: 67 Year
  Sex: Male

DRUGS (4)
  1. GEFITINIB [Suspect]
     Active Substance: GEFITINIB
     Indication: Lung adenocarcinoma stage IV
     Dosage: UNK
     Route: 065
  2. OSIMERTINIB [Suspect]
     Active Substance: OSIMERTINIB
     Indication: Lung adenocarcinoma stage IV
     Dosage: UNK
     Route: 065
  3. OSIMERTINIB [Suspect]
     Active Substance: OSIMERTINIB
     Dosage: DOSAGE WAS DOUBLED
     Route: 065
  4. CABOZANTINIB [Concomitant]
     Active Substance: CABOZANTINIB
     Indication: Lung adenocarcinoma stage IV

REACTIONS (7)
  - Malignant neoplasm progression [Unknown]
  - Acquired gene mutation [Unknown]
  - Metastases to liver [Unknown]
  - Metastases to peritoneum [Unknown]
  - Drug resistance [Unknown]
  - Dry mouth [Unknown]
  - Nasal dryness [Unknown]

NARRATIVE: CASE EVENT DATE: 20210101
